FAERS Safety Report 13272680 (Version 2)
Quarter: 2017Q1

REPORT INFORMATION
  Report Type: Spontaneous
  Country: US (occurrence: US)
  Receive Date: 20170227
  Receipt Date: 20170327
  Transmission Date: 20170428
  Serious: No
  Sender: FDA-Public Use
  Company Number: US-PFIZER INC-2015324684

PATIENT
  Age: 66 Year
  Sex: Female

DRUGS (4)
  1. XELJANZ [Suspect]
     Active Substance: TOFACITINIB CITRATE
     Indication: ALOPECIA AREATA
     Dosage: 5 MG, 2X/DAY
     Route: 048
     Dates: start: 20151002
  2. XELJANZ [Suspect]
     Active Substance: TOFACITINIB CITRATE
     Indication: LICHEN PLANUS
     Dosage: 5 MG, 3X/DAY
     Route: 048
     Dates: start: 20151101, end: 20161201
  3. XELJANZ [Suspect]
     Active Substance: TOFACITINIB CITRATE
     Dosage: 5 MG, 2X/DAY
     Dates: start: 20161201
  4. XELJANZ [Suspect]
     Active Substance: TOFACITINIB CITRATE
     Dosage: 15 MG, 2X/DAY
     Route: 048

REACTIONS (3)
  - Overdose [Unknown]
  - Weight increased [Unknown]
  - Product use issue [Not Recovered/Not Resolved]

NARRATIVE: CASE EVENT DATE: 20151002
